FAERS Safety Report 8275214 (Version 2)
Quarter: 2013Q4

REPORT INFORMATION
  Report Type: Spontaneous
  Country: US (occurrence: US)
  Receive Date: 20111205
  Receipt Date: 20131230
  Transmission Date: 20140711
  Serious: Yes (Hospitalization)
  Sender: FDA-Public Use
  Company Number: US-GLAXOSMITHKLINE-A0938880A

PATIENT
  Age: 62 Year
  Sex: Female

DRUGS (1)
  1. AVANDIA [Suspect]
     Indication: DIABETES MELLITUS
     Route: 048
     Dates: start: 19990916, end: 200406

REACTIONS (4)
  - Cerebrovascular accident [Unknown]
  - Cardiovascular disorder [Unknown]
  - Carotid artery occlusion [Unknown]
  - Cardiac flutter [Unknown]
